FAERS Safety Report 4607337-1 (Version None)
Quarter: 2005Q1

REPORT INFORMATION
  Report Type: 
  Country: None (occurrence: None)
  Receive Date: 20050311
  Receipt Date: 20050311
  Transmission Date: 20050727
  Serious: Yes (Life-Threatening, Disabling, Other)
  Sender: FDA-Public Use
  Company Number: None

PATIENT
  Age: 47 Year
  Sex: Male

DRUGS (4)
  1. IBUPROFEN [Suspect]
     Dosage: 3 X DAILY BY MOUTH
     Route: 048
     Dates: start: 20041228
  2. IBUPROFEN [Suspect]
     Dosage: 3 X DAILY BY MOUTH
     Route: 048
     Dates: start: 20050105
  3. IBUPROFEN [Suspect]
     Dosage: 3 X DAILY BY MOUTH
     Route: 048
     Dates: start: 20050111
  4. IBUPROFEN [Suspect]

REACTIONS (4)
  - BACK PAIN [None]
  - CONSTIPATION [None]
  - DRUG INEFFECTIVE [None]
  - PHARMACEUTICAL PRODUCT COMPLAINT [None]
